FAERS Safety Report 21318649 (Version 1)
Quarter: 2022Q3

REPORT INFORMATION
  Report Type: Spontaneous
  Country: US (occurrence: US)
  Receive Date: 20220911
  Receipt Date: 20220911
  Transmission Date: 20221027
  Serious: No
  Sender: FDA-Public Use
  Company Number: US-SA-SAC20220830000112

PATIENT
  Sex: Female

DRUGS (3)
  1. DUPIXENT [Suspect]
     Active Substance: DUPILUMAB
     Indication: Dermatitis atopic
     Dosage: 300MG , QOW
     Route: 058
     Dates: start: 20211015
  2. CLOBETASOL [Concomitant]
     Active Substance: CLOBETASOL
  3. TACROLIMUS [Concomitant]
     Active Substance: TACROLIMUS

REACTIONS (2)
  - Insomnia [Unknown]
  - Dermatitis atopic [Unknown]
